FAERS Safety Report 15682859 (Version 1)
Quarter: 2018Q4

REPORT INFORMATION
  Report Type: Spontaneous
  Country: DE (occurrence: DE)
  Receive Date: 20181203
  Receipt Date: 20181203
  Transmission Date: 20190205
  Serious: Yes (Other)
  Sender: FDA-Public Use
  Company Number: DE-009507513-1811DEU012277

PATIENT
  Age: 53 Year
  Sex: Male
  Weight: 104 kg

DRUGS (15)
  1. RAMIPRIL. [Concomitant]
     Active Substance: RAMIPRIL
     Dosage: 5 MILLIGRAM (DOSAGE FORM: UNSPECIFIED  )
     Route: 065
  2. ISENTRESS [Suspect]
     Active Substance: RALTEGRAVIR POTASSIUM
     Indication: HIV INFECTION
     Dosage: 800 MILLIGRAM, QD (DOSAGE FORM: UNSPECIFIED)
     Route: 048
     Dates: start: 20120329
  3. SOVALDI [Suspect]
     Active Substance: SOFOSBUVIR
     Indication: CHRONIC HEPATITIS C
     Dosage: 400 MILLIGRAM, QD (DOSAGE FORM: UNSPECIFIED)
     Route: 048
     Dates: start: 20141016, end: 20150108
  4. METFORMIN [Concomitant]
     Active Substance: METFORMIN HYDROCHLORIDE
     Indication: HYPERGLYCAEMIA
     Dosage: DOSAGE FORM: UNSPECIFIED
     Route: 065
     Dates: start: 20150121
  5. PARACODINE (DIHYDROCODEINE BITARTRATE) [Concomitant]
     Indication: COUGH
     Dosage: DOSAGE FORM: UNSPECIFIED
     Route: 065
     Dates: start: 20141210, end: 20141217
  6. DAKLINZA [Suspect]
     Active Substance: DACLATASVIR
     Indication: CHRONIC HEPATITIS C
     Dosage: 60 MILLIGRAM, QD (DOSAGE FORM: UNSPECIFIED)
     Route: 048
     Dates: start: 20141016, end: 20150108
  7. RAMIPRIL. [Concomitant]
     Active Substance: RAMIPRIL
     Dosage: DOSAGE FORM: UNSPECIFIED, 5/25MG
     Route: 065
  8. COPEGUS [Suspect]
     Active Substance: RIBAVIRIN
     Indication: CHRONIC HEPATITIS C
     Dosage: 1200 MILLIGRAM, QD (DOSAGE FORM: UNSPECIFIED)
     Route: 048
     Dates: start: 20141016, end: 20150108
  9. ANAESTHESULF [Concomitant]
     Dosage: DOSAGE FORM: UNSPECIFIED
     Route: 065
     Dates: start: 20150108
  10. PREZISTA [Suspect]
     Active Substance: DARUNAVIR ETHANOLATE
     Indication: HIV INFECTION
     Dosage: 800 MILLIGRAM, QD
     Route: 048
     Dates: start: 20120329
  11. NORVIR [Suspect]
     Active Substance: RITONAVIR
     Indication: HIV INFECTION
     Dosage: 100 MILLIGRAM, QD (DOSAGE FORM: UNSPECIFIED)
     Route: 048
     Dates: start: 20120329
  12. ACYCLOVIR. [Concomitant]
     Active Substance: ACYCLOVIR
     Indication: GENITAL HERPES SIMPLEX
     Dosage: 800 MILLIGRAM (DOSAGE FORM: UNSPECIFIED)
     Route: 065
     Dates: start: 20150108, end: 20150215
  13. ATROVENT [Concomitant]
     Active Substance: IPRATROPIUM BROMIDE
     Dosage: AS NECESSARY
     Route: 065
     Dates: start: 20141124, end: 20141231
  14. CORTISONE [Concomitant]
     Active Substance: CORTISONE\HYDROCORTISONE
     Dosage: DOSAGE FORM: UNSPECIFIED
     Route: 065
  15. BISOPROLOL [Concomitant]
     Active Substance: BISOPROLOL
     Dosage: 5 MILLIGRAM (DOSAGE FORM: UNSPECIFIED)
     Route: 065
     Dates: start: 20061101

REACTIONS (11)
  - Candida infection [Recovered/Resolved]
  - Fatigue [Recovered/Resolved]
  - Influenza [Recovered/Resolved]
  - Oropharyngeal pain [Recovered/Resolved]
  - Insomnia [Recovered/Resolved]
  - Hyperglycaemia [Recovered/Resolved]
  - Genital herpes simplex [Recovered/Resolved]
  - Thrombosis [Unknown]
  - Embolism [Unknown]
  - Cough [Recovered/Resolved]
  - Diarrhoea [Recovered/Resolved]

NARRATIVE: CASE EVENT DATE: 20141125
